FAERS Safety Report 7668441-7 (Version None)
Quarter: 2011Q3

REPORT INFORMATION
  Report Type: 
  Country: None (occurrence: None)
  Receive Date: 20110808
  Receipt Date: 20110531
  Transmission Date: 20111222
  Serious: No
  Sender: FDA-Public Use
  Company Number: US-GLAXOSMITHKLINE-A0929695A

PATIENT
  Age: 18 Year
  Sex: Male

DRUGS (2)
  1. LIALDA [Concomitant]
  2. VELTIN [Suspect]
     Indication: ACNE
     Dosage: 1APP AT NIGHT
     Route: 061
     Dates: start: 20110526, end: 20110530

REACTIONS (2)
  - ACNE [None]
  - CONDITION AGGRAVATED [None]
